FAERS Safety Report 7767859-1 (Version None)
Quarter: 2011Q3

REPORT INFORMATION
  Report Type: 
  Country: None (occurrence: None)
  Receive Date: 20110922
  Receipt Date: 20110516
  Transmission Date: 20111222
  Serious: No
  Sender: FDA-Public Use
  Company Number: US-ASTRAZENECA-2011SE29559

PATIENT
  Sex: Male

DRUGS (6)
  1. SEROQUEL [Suspect]
     Route: 048
  2. ARICEPT [Concomitant]
  3. SEROQUEL [Suspect]
     Indication: AGITATION
     Route: 048
     Dates: start: 20110401
  4. ATIVAN [Concomitant]
  5. NAMENDA [Concomitant]
  6. LISINOPRIL [Concomitant]

REACTIONS (3)
  - OFF LABEL USE [None]
  - OEDEMA PERIPHERAL [None]
  - GENERALISED OEDEMA [None]
